FAERS Safety Report 9657610 (Version 2)
Quarter: 2013Q4

REPORT INFORMATION
  Report Type: Spontaneous
  Country: US (occurrence: US)
  Receive Date: 20131030
  Receipt Date: 20131030
  Transmission Date: 20140711
  Serious: Yes (Other)
  Sender: FDA-Public Use
  Company Number: US-NAPPMUNDI-USA-2011-0063171

PATIENT
  Age: 23 Year
  Sex: Male
  Weight: 58.96 kg

DRUGS (4)
  1. OXYCONTIN TABLETS [Suspect]
     Indication: DRUG ABUSE
  2. XANAX [Suspect]
     Indication: DRUG ABUSE
  3. FENTANYL [Suspect]
     Indication: DRUG ABUSE
     Route: 062
  4. COCAINE [Suspect]
     Indication: DRUG ABUSE

REACTIONS (8)
  - Drug dependence [Recovering/Resolving]
  - Substance abuse [Recovering/Resolving]
  - Drug withdrawal syndrome [Recovering/Resolving]
  - Delusion [Recovering/Resolving]
  - Pain [Recovering/Resolving]
  - Vomiting [Recovering/Resolving]
  - Confusional state [Recovering/Resolving]
  - Tremor [Recovering/Resolving]
